FAERS Safety Report 17396913 (Version 1)
Quarter: 2020Q1

REPORT INFORMATION
  Report Type: Report from Study
  Country: DE (occurrence: DE)
  Receive Date: 20200210
  Receipt Date: 20200210
  Transmission Date: 20200409
  Serious: Yes (Hospitalization, Other)
  Sender: FDA-Public Use
  Company Number: DE-PFIZER INC-2020049888

PATIENT
  Age: 14 Year
  Sex: Male
  Weight: 70 kg

DRUGS (20)
  1. TOCILIZUMAB. [Suspect]
     Active Substance: TOCILIZUMAB
     Dosage: 800 MG, EVERY 2 WEEKS
     Route: 042
     Dates: start: 20160218
  2. PREDNISONE. [Suspect]
     Active Substance: PREDNISONE
     Dosage: 7.5 MG, DAILY
     Route: 048
  3. TOCILIZUMAB. [Suspect]
     Active Substance: TOCILIZUMAB
     Indication: STILL^S DISEASE
     Dosage: 800 MG, EVERY 2 WEEKS
     Route: 042
     Dates: start: 201111
  4. TOCILIZUMAB. [Suspect]
     Active Substance: TOCILIZUMAB
     Dosage: 800 MG, EVERY 2 WEEKS
     Route: 042
     Dates: start: 20111217
  5. TOCILIZUMAB. [Suspect]
     Active Substance: TOCILIZUMAB
     Dosage: 800 MG, EVERY 2 WEEKS
     Route: 042
     Dates: start: 20160105
  6. FOLIC ACID. [Concomitant]
     Active Substance: FOLIC ACID
     Dosage: 5 MG, WEEKLY
     Route: 048
  7. METHOTREXATE SODIUM. [Suspect]
     Active Substance: METHOTREXATE SODIUM
     Indication: STILL^S DISEASE
     Dosage: 17.5 MG, WEEKLY
     Route: 048
     Dates: start: 20090303
  8. TOCILIZUMAB. [Suspect]
     Active Substance: TOCILIZUMAB
     Dosage: 800 MG, EVERY 2 WEEKS
     Route: 042
     Dates: start: 20160120
  9. TOCILIZUMAB. [Suspect]
     Active Substance: TOCILIZUMAB
     Dosage: 800 MG, EVERY 2 WEEKS
     Route: 042
     Dates: start: 20160202
  10. PARACETAMOL [Concomitant]
     Active Substance: ACETAMINOPHEN
     Dosage: 1000 MG, DAILY
     Route: 065
     Dates: start: 20160407
  11. TOCILIZUMAB. [Suspect]
     Active Substance: TOCILIZUMAB
     Dosage: 600 MG, EVERY 2 WEEKS
     Route: 042
     Dates: start: 20160309
  12. ARCOXIA [Concomitant]
     Active Substance: ETORICOXIB
     Indication: STILL^S DISEASE
     Dosage: 180 MG, DAILY
     Route: 048
     Dates: start: 20160120
  13. OMNITROPE [Concomitant]
     Active Substance: SOMATROPIN
     Indication: GROWTH HORMONE DEFICIENCY
     Dosage: 1.4 MG, DAILY
     Route: 058
     Dates: start: 20130801
  14. PREDNISONE. [Suspect]
     Active Substance: PREDNISONE
     Indication: STILL^S DISEASE
     Dosage: 5 MG, DAILY
     Route: 048
     Dates: start: 20111217
  15. PCM [Concomitant]
     Active Substance: ACETAMINOPHEN
     Dosage: 1000 MG, DAILY
     Route: 048
     Dates: start: 20160407
  16. NOVALGIN (METAMIZOLE SODIUM) [Concomitant]
     Active Substance: METAMIZOLE SODIUM
     Indication: STILL^S DISEASE
     Dosage: 1500 MG, DAILY
     Route: 048
     Dates: start: 20170119
  17. OMEPRAZOLE. [Concomitant]
     Active Substance: OMEPRAZOLE
     Indication: PROPHYLAXIS
     Dosage: 40 MG, DAILY
     Route: 048
     Dates: start: 20121101
  18. ETORICOXIB. [Concomitant]
     Active Substance: ETORICOXIB
     Indication: STILL^S DISEASE
     Dosage: 180 MG, DAILY
     Route: 048
     Dates: start: 20160120
  19. PARACETAMOL [Concomitant]
     Active Substance: ACETAMINOPHEN
     Dosage: 1500 MG, DAILY
     Route: 048
  20. PCM [Concomitant]
     Active Substance: ACETAMINOPHEN
     Dosage: 1500 MG, DAILY
     Route: 048

REACTIONS (9)
  - General physical health deterioration [Not Recovered/Not Resolved]
  - Abscess limb [Recovered/Resolved]
  - Hyperbilirubinaemia [Not Recovered/Not Resolved]
  - Osteoarthritis [Recovered/Resolved]
  - Thrombophlebitis [Recovered/Resolved]
  - Still^s disease [Recovering/Resolving]
  - Still^s disease [Recovering/Resolving]
  - Abscess limb [Recovered/Resolved]
  - Pain [Not Recovered/Not Resolved]

NARRATIVE: CASE EVENT DATE: 20160105
